FAERS Safety Report 16206818 (Version 1)
Quarter: 2019Q2

REPORT INFORMATION
  Report Type: Spontaneous
  Country: ES (occurrence: ES)
  Receive Date: 20190417
  Receipt Date: 20190417
  Transmission Date: 20190711
  Serious: Yes (Other)
  Sender: FDA-Public Use
  Company Number: ES-AUROBINDO-AUR-APL-2019-021507

PATIENT

DRUGS (1)
  1. VORICONAZOLE. [Suspect]
     Active Substance: VORICONAZOLE
     Indication: BRONCHIECTASIS
     Dosage: 1 DOSAGE FORM, TWO TIMES A DAY (1C / 12HOURS 60 DAYS)
     Route: 048
     Dates: start: 20190329, end: 20190404

REACTIONS (3)
  - Metamorphopsia [Recovered/Resolved]
  - Visual impairment [Recovered/Resolved]
  - Photopsia [Recovered/Resolved]

NARRATIVE: CASE EVENT DATE: 20190329
